FAERS Safety Report 6626459-7 (Version None)
Quarter: 2010Q1

REPORT INFORMATION
  Report Type: 
  Country: None (occurrence: None)
  Receive Date: 20100310
  Receipt Date: 20100305
  Transmission Date: 20100710
  Serious: Yes (Other)
  Sender: FDA-Public Use
  Company Number: US-WYE-H13925510

PATIENT
  Sex: Female
  Weight: 47.67 kg

DRUGS (6)
  1. PREMPRO [Suspect]
     Indication: HOT FLUSH
     Dosage: 0.625MG/2.5MG DAILY
     Route: 048
  2. WELLBUTRIN [Concomitant]
  3. TRAZODONE HCL [Concomitant]
     Indication: DEPRESSION
     Dosage: UNKNOWN
     Route: 065
  4. RIBOFLAVIN TAB [Concomitant]
     Indication: LIVER DISORDER
     Dosage: UNKNOWN
     Route: 065
  5. INTERFERON [Suspect]
     Indication: LIVER DISORDER
     Dosage: UNKNOWN
     Route: 065
     Dates: start: 20100101
  6. PROZAC [Concomitant]
     Indication: DEPRESSION
     Dosage: UNKNOWN
     Route: 065

REACTIONS (3)
  - PLATELET COUNT DECREASED [None]
  - PRODUCT QUALITY ISSUE [None]
  - VAGINAL HAEMORRHAGE [None]
